FAERS Safety Report 23716512 (Version 1)
Quarter: 2024Q2

REPORT INFORMATION
  Report Type: Spontaneous
  Country: FR (occurrence: FR)
  Receive Date: 20240408
  Receipt Date: 20240408
  Transmission Date: 20240715
  Serious: Yes (Other)
  Sender: FDA-Public Use
  Company Number: None

PATIENT
  Age: 59 Year
  Sex: Male

DRUGS (5)
  1. ISONIAZID\RIFAMPIN [Suspect]
     Active Substance: ISONIAZID\RIFAMPIN
     Indication: Bovine tuberculosis
     Dosage: 2 DF, QD
     Route: 048
     Dates: start: 20240202, end: 20240229
  2. ETHAMBUTOL HYDROCHLORIDE [Suspect]
     Active Substance: ETHAMBUTOL HYDROCHLORIDE
     Indication: Bovine tuberculosis
     Dosage: 1000 MG, QD
     Route: 048
     Dates: start: 20240202, end: 20240229
  3. LIPTRUZET [Concomitant]
     Active Substance: ATORVASTATIN CALCIUM\EZETIMIBE
     Dosage: 1 DF
     Route: 048
     Dates: start: 20240105
  4. SILODOSIN [Concomitant]
     Active Substance: SILODOSIN
     Dosage: 1 DF
     Route: 048
     Dates: start: 202310
  5. ASPIRIN DL-LYSINE [Concomitant]
     Active Substance: ASPIRIN DL-LYSINE
     Dosage: 250 MG, QD
     Route: 048
     Dates: start: 202312

REACTIONS (1)
  - Polyarthritis [Recovering/Resolving]

NARRATIVE: CASE EVENT DATE: 20240201
